APPROVED DRUG PRODUCT: CHYMEX
Active Ingredient: BENTIROMIDE
Strength: 500MG/7.5ML
Dosage Form/Route: SOLUTION;ORAL
Application: N018366 | Product #001
Applicant: SAVAGE LABORATORIES INC DIV ALTANA INC
Approved: Dec 29, 1983 | RLD: No | RS: No | Type: DISCN